FAERS Safety Report 22189549 (Version 3)
Quarter: 2023Q2

REPORT INFORMATION
  Report Type: Report from Study
  Country: JP (occurrence: JP)
  Receive Date: 20230410
  Receipt Date: 20230614
  Transmission Date: 20230722
  Serious: Yes (Other)
  Sender: FDA-Public Use
  Company Number: JP-CELLTRION INC.-2023JP006881

PATIENT

DRUGS (40)
  1. INVESTIGATIONAL BIOSIMILARS [Suspect]
     Active Substance: INVESTIGATIONAL BIOSIMILARS
     Indication: HER2 positive gastric cancer
     Dosage: 440 MILLIGRAM, QD
     Route: 041
     Dates: start: 20210525, end: 20210525
  2. INVESTIGATIONAL BIOSIMILARS [Suspect]
     Active Substance: INVESTIGATIONAL BIOSIMILARS
     Dosage: 345 MILLIGRAM, QD
     Route: 041
     Dates: start: 20210618, end: 20210618
  3. INVESTIGATIONAL BIOSIMILARS [Suspect]
     Active Substance: INVESTIGATIONAL BIOSIMILARS
     Dosage: 345 MILLIGRAM, QD
     Route: 041
     Dates: start: 20210709, end: 20210709
  4. INVESTIGATIONAL BIOSIMILARS [Suspect]
     Active Substance: INVESTIGATIONAL BIOSIMILARS
     Dosage: 320 MILLIGRAM, QD
     Route: 041
     Dates: start: 20210730, end: 20210730
  5. INVESTIGATIONAL BIOSIMILARS [Suspect]
     Active Substance: INVESTIGATIONAL BIOSIMILARS
     Dosage: 320 MILLIGRAM, QD
     Route: 041
     Dates: start: 20210903, end: 20210903
  6. INVESTIGATIONAL BIOSIMILARS [Suspect]
     Active Substance: INVESTIGATIONAL BIOSIMILARS
     Dosage: 320 MILLIGRAM, QD
     Route: 041
     Dates: start: 20211008, end: 20211008
  7. INVESTIGATIONAL BIOSIMILARS [Suspect]
     Active Substance: INVESTIGATIONAL BIOSIMILARS
     Dosage: 320 MILLIGRAM, QD
     Route: 041
     Dates: start: 20211029, end: 20211029
  8. INVESTIGATIONAL BIOSIMILARS [Suspect]
     Active Substance: INVESTIGATIONAL BIOSIMILARS
     Dosage: 360 MILLIGRAM, QD
     Route: 041
     Dates: start: 20211119, end: 20211119
  9. INVESTIGATIONAL BIOSIMILARS [Suspect]
     Active Substance: INVESTIGATIONAL BIOSIMILARS
     Dosage: 320 MILLIGRAM, QD
     Route: 041
     Dates: start: 20220107, end: 20220107
  10. INVESTIGATIONAL BIOSIMILARS [Suspect]
     Active Substance: INVESTIGATIONAL BIOSIMILARS
     Dosage: 320 MILLIGRAM, QD
     Route: 041
     Dates: start: 20220225, end: 20220225
  11. INVESTIGATIONAL BIOSIMILARS [Suspect]
     Active Substance: INVESTIGATIONAL BIOSIMILARS
     Dosage: 320 MILLIGRAM, QD
     Route: 041
     Dates: start: 20220325, end: 20220325
  12. INVESTIGATIONAL BIOSIMILARS [Suspect]
     Active Substance: INVESTIGATIONAL BIOSIMILARS
     Dosage: 320 MILLIGRAM, QD
     Route: 041
     Dates: start: 20220415, end: 20220415
  13. INVESTIGATIONAL BIOSIMILARS [Suspect]
     Active Substance: INVESTIGATIONAL BIOSIMILARS
     Dosage: 320 MILLIGRAM, QD
     Route: 041
     Dates: start: 20220506, end: 20220506
  14. INVESTIGATIONAL BIOSIMILARS [Suspect]
     Active Substance: INVESTIGATIONAL BIOSIMILARS
     Dosage: 320 MILLIGRAM, QD
     Route: 041
     Dates: start: 20220603, end: 20220603
  15. OXALIPLATIN [Suspect]
     Active Substance: OXALIPLATIN
     Indication: HER2 positive gastric cancer
     Dosage: 170 MILLIGRAM, QD
     Route: 041
     Dates: start: 20210525, end: 20210525
  16. OXALIPLATIN [Suspect]
     Active Substance: OXALIPLATIN
     Dosage: 170 MILLIGRAM, QD
     Route: 041
     Dates: start: 20210618, end: 20210618
  17. OXALIPLATIN [Suspect]
     Active Substance: OXALIPLATIN
     Dosage: 170 MILLIGRAM, QD
     Route: 041
     Dates: start: 20210709, end: 20210709
  18. OXALIPLATIN [Suspect]
     Active Substance: OXALIPLATIN
     Dosage: 170 MILLIGRAM, QD
     Route: 041
     Dates: start: 20210730, end: 20210730
  19. OXALIPLATIN [Suspect]
     Active Substance: OXALIPLATIN
     Dosage: 170 MILLIGRAM, QD
     Route: 041
     Dates: start: 20210903, end: 20210903
  20. OXALIPLATIN [Suspect]
     Active Substance: OXALIPLATIN
     Dosage: 170 MILLIGRAM, QD
     Route: 041
     Dates: start: 20211008, end: 20211008
  21. OXALIPLATIN [Suspect]
     Active Substance: OXALIPLATIN
     Dosage: 170 MILLIGRAM, QD
     Route: 041
     Dates: start: 20211029, end: 20211029
  22. OXALIPLATIN [Suspect]
     Active Substance: OXALIPLATIN
     Dosage: 170 MILLIGRAM, QD
     Route: 041
     Dates: start: 20211119, end: 20211119
  23. GIMERACIL\OTERACIL\TEGAFUR [Suspect]
     Active Substance: GIMERACIL\OTERACIL\OTERACIL POTASSIUM\TEGAFUR
     Indication: HER2 positive gastric cancer
     Dosage: 120 MILLIGRAM, QD
     Route: 048
     Dates: start: 20210525, end: 20210607
  24. GIMERACIL\OTERACIL\TEGAFUR [Suspect]
     Active Substance: GIMERACIL\OTERACIL\OTERACIL POTASSIUM\TEGAFUR
     Dosage: 120 MILLIGRAM, QD
     Route: 048
     Dates: start: 20210618, end: 20210701
  25. GIMERACIL\OTERACIL\TEGAFUR [Suspect]
     Active Substance: GIMERACIL\OTERACIL\OTERACIL POTASSIUM\TEGAFUR
     Dosage: 120 MILLIGRAM, QD
     Route: 048
     Dates: start: 20210709, end: 20210722
  26. GIMERACIL\OTERACIL\TEGAFUR [Suspect]
     Active Substance: GIMERACIL\OTERACIL\OTERACIL POTASSIUM\TEGAFUR
     Dosage: 120 MILLIGRAM, QD
     Route: 048
     Dates: start: 20210730, end: 20210812
  27. GIMERACIL\OTERACIL\TEGAFUR [Suspect]
     Active Substance: GIMERACIL\OTERACIL\OTERACIL POTASSIUM\TEGAFUR
     Dosage: 120 MILLIGRAM, QD
     Route: 048
     Dates: start: 20210903, end: 20210916
  28. GIMERACIL\OTERACIL\TEGAFUR [Suspect]
     Active Substance: GIMERACIL\OTERACIL\OTERACIL POTASSIUM\TEGAFUR
     Dosage: 100 MILLIGRAM, QD
     Route: 048
     Dates: start: 20211008, end: 20211022
  29. GIMERACIL\OTERACIL\TEGAFUR [Suspect]
     Active Substance: GIMERACIL\OTERACIL\OTERACIL POTASSIUM\TEGAFUR
     Dosage: 100 MILLIGRAM, QD
     Route: 048
     Dates: start: 20211029, end: 20211112
  30. GIMERACIL\OTERACIL\TEGAFUR [Suspect]
     Active Substance: GIMERACIL\OTERACIL\OTERACIL POTASSIUM\TEGAFUR
     Dosage: 100 MILLIGRAM, QD
     Route: 048
     Dates: start: 20211119, end: 20211203
  31. GIMERACIL\OTERACIL\TEGAFUR [Suspect]
     Active Substance: GIMERACIL\OTERACIL\OTERACIL POTASSIUM\TEGAFUR
     Dosage: 100 MILLIGRAM, QD
     Route: 048
     Dates: start: 20220107, end: 20220121
  32. GIMERACIL\OTERACIL\TEGAFUR [Suspect]
     Active Substance: GIMERACIL\OTERACIL\OTERACIL POTASSIUM\TEGAFUR
     Dosage: 100 MILLIGRAM, QD
     Route: 048
     Dates: start: 20220225, end: 20220311
  33. GIMERACIL\OTERACIL\TEGAFUR [Suspect]
     Active Substance: GIMERACIL\OTERACIL\OTERACIL POTASSIUM\TEGAFUR
     Dosage: 100 MILLIGRAM, QD
     Route: 048
     Dates: start: 20220325, end: 20220408
  34. GIMERACIL\OTERACIL\TEGAFUR [Suspect]
     Active Substance: GIMERACIL\OTERACIL\OTERACIL POTASSIUM\TEGAFUR
     Dosage: 100 MILLIGRAM, QD
     Route: 048
     Dates: start: 20220415, end: 20220429
  35. GIMERACIL\OTERACIL\TEGAFUR [Suspect]
     Active Substance: GIMERACIL\OTERACIL\OTERACIL POTASSIUM\TEGAFUR
     Dosage: 100 MILLIGRAM, QD
     Route: 048
     Dates: start: 20220506, end: 20220520
  36. GIMERACIL\OTERACIL\TEGAFUR [Suspect]
     Active Substance: GIMERACIL\OTERACIL\OTERACIL POTASSIUM\TEGAFUR
     Dosage: 100 MILLIGRAM, QD
     Route: 048
     Dates: start: 20220603, end: 20220617
  37. METGLUCO [Concomitant]
     Active Substance: METFORMIN HYDROCHLORIDE
     Indication: Diabetes mellitus
     Dosage: UNK
     Dates: end: 20210528
  38. TAMSULOSIN HYDROCHLORIDE [Concomitant]
     Active Substance: TAMSULOSIN HYDROCHLORIDE
     Indication: Benign prostatic hyperplasia
     Dosage: UNK
     Dates: end: 20210624
  39. CALONAL [Concomitant]
     Active Substance: ACETAMINOPHEN
     Indication: HER2 positive gastric cancer
     Dosage: UNK
     Dates: end: 20210618
  40. SODIUM FERROUS CITRATE [Concomitant]
     Active Substance: SODIUM FERROUS CITRATE
     Indication: Iron deficiency anaemia
     Dosage: UNK
     Dates: start: 20210526

REACTIONS (7)
  - Pneumonia [Recovering/Resolving]
  - Blood zinc decreased [Not Recovered/Not Resolved]
  - Anaemia [Recovering/Resolving]
  - White blood cell count decreased [Recovered/Resolved]
  - Platelet count decreased [Recovering/Resolving]
  - Lung disorder [Unknown]
  - Intentional product use issue [Unknown]

NARRATIVE: CASE EVENT DATE: 20210709
